FAERS Safety Report 12699581 (Version 13)
Quarter: 2017Q3

REPORT INFORMATION
  Report Type: Report from Study
  Country: AU (occurrence: AU)
  Receive Date: 20160830
  Receipt Date: 20170901
  Transmission Date: 20171127
  Serious: Yes (Death, Hospitalization)
  Sender: FDA-Public Use
  Company Number: AU-PFIZER INC-2016396462

PATIENT
  Age: 55 Year
  Sex: Male
  Weight: 60 kg

DRUGS (6)
  1. NO SUBJECT DRUG [Suspect]
     Active Substance: UNSPECIFIED INGREDIENT
     Dosage: NO DOSE GIVEN
  2. DIAZEPAM. [Suspect]
     Active Substance: DIAZEPAM
     Indication: NECK PAIN
     Dosage: 5 MG, AS NEEDED
     Route: 048
     Dates: start: 201607
  3. PREGABALIN. [Suspect]
     Active Substance: PREGABALIN
     Indication: BACK PAIN
     Dosage: 150 MG, 2X/DAY
     Route: 048
     Dates: start: 2014
  4. OXAZEPAM. [Suspect]
     Active Substance: OXAZEPAM
     Indication: INSOMNIA
     Dosage: 30 MG, 1X/DAY
     Route: 048
     Dates: start: 201607
  5. TARGIN [Suspect]
     Active Substance: NALOXONE HYDROCHLORIDE\OXYCODONE HYDROCHLORIDE
     Indication: BACK PAIN
     Dosage: 30/15 MG, 2X/DAY
     Route: 048
     Dates: start: 2014
  6. ENDONE [Suspect]
     Active Substance: OXYCODONE HYDROCHLORIDE
     Indication: BACK PAIN
     Dosage: 5 MG, AS NEEDED
     Route: 048
     Dates: start: 2014

REACTIONS (3)
  - Confusional state [Recovered/Resolved]
  - Hypotension [Recovered/Resolved]
  - Sinus tachycardia [Not Recovered/Not Resolved]

NARRATIVE: CASE EVENT DATE: 20160810
